FAERS Safety Report 18073873 (Version 3)
Quarter: 2020Q3

REPORT INFORMATION
  Report Type: Spontaneous
  Country: CA (occurrence: CA)
  Receive Date: 20200727
  Receipt Date: 20200818
  Transmission Date: 20201103
  Serious: Yes (Death, Hospitalization, Other)
  Sender: FDA-Public Use
  Company Number: CA-PFIZER INC-2020282117

PATIENT
  Age: 62 Year
  Sex: Female

DRUGS (4)
  1. LOVENOX [LEVOFLOXACIN] [Concomitant]
     Active Substance: LEVOFLOXACIN
     Dosage: 100 MG, DAILY (100 MG QD)
  2. MORPHINE [Concomitant]
     Active Substance: MORPHINE
     Dosage: 10 MG, 2X/DAY (10MG BID)
  3. TYLENOL [Concomitant]
     Active Substance: ACETAMINOPHEN
     Dosage: UNK (ES PRN)
  4. IBRANCE [Suspect]
     Active Substance: PALBOCICLIB
     Dosage: 125 MG, CYCLIC (TAKE 1 CAPSULE BY MOUTH ONCE DAILY FOR 21 DAYS IN A ROW, STOP FOR 7 DAYS)
     Route: 048
     Dates: start: 20200708

REACTIONS (3)
  - Death [Fatal]
  - Dehydration [Unknown]
  - Illness [Unknown]

NARRATIVE: CASE EVENT DATE: 2020
